FAERS Safety Report 24120976 (Version 1)
Quarter: 2024Q3

REPORT INFORMATION
  Report Type: Spontaneous
  Country: US (occurrence: US)
  Receive Date: 20240722
  Receipt Date: 20240722
  Transmission Date: 20241017
  Serious: No
  Sender: PFIZER
  Company Number: US-PFIZER INC-PV202400084552

PATIENT
  Age: 71 Year
  Sex: Female

DRUGS (3)
  1. TUKYSA [Suspect]
     Active Substance: TUCATINIB
     Dosage: 1 TABLET IN THE MORNING AND 1 TABLET IN THE EVENING
  2. TUKYSA [Suspect]
     Active Substance: TUCATINIB
     Dosage: 150MG 1 TIME A DAY
  3. CAPECITABINE [Suspect]
     Active Substance: CAPECITABINE
     Dosage: UNK

REACTIONS (1)
  - Liver function test increased [Unknown]
